FAERS Safety Report 17515389 (Version 1)
Quarter: 2020Q1

REPORT INFORMATION
  Report Type: Spontaneous
  Country: FR (occurrence: FR)
  Receive Date: 20200309
  Receipt Date: 20200309
  Transmission Date: 20200409
  Serious: Yes (Hospitalization, Other)
  Sender: FDA-Public Use
  Company Number: FR-GLAXOSMITHKLINE-FR2020037441

PATIENT
  Age: 94 Year
  Sex: Male

DRUGS (5)
  1. SERETIDE [Suspect]
     Active Substance: FLUTICASONE PROPIONATE\SALMETEROL XINAFOATE
     Indication: BRONCHITIS
     Dosage: UNK
     Route: 055
     Dates: start: 2020, end: 20200111
  2. PYOSTACINE [Suspect]
     Active Substance: PRISTINAMYCIN
     Indication: BRONCHITIS
     Dosage: UNK
     Route: 048
     Dates: start: 202001, end: 20200111
  3. BRONCHOKOD [Suspect]
     Active Substance: CARBOCYSTEINE
     Indication: BRONCHITIS
     Dosage: UNK
     Route: 048
     Dates: start: 20200109, end: 20200111
  4. MUCOMYST [Suspect]
     Active Substance: ACETYLCYSTEINE
     Indication: BRONCHITIS
     Dosage: UNK
     Route: 048
     Dates: start: 202001, end: 20200111
  5. SOLUPRED (PREDNISOLONE) [Suspect]
     Active Substance: PREDNISOLONE
     Indication: BRONCHITIS
     Dosage: UNK
     Route: 048
     Dates: start: 202001, end: 20200111

REACTIONS (2)
  - Myoclonic epilepsy [Recovered/Resolved]
  - Status epilepticus [Recovered/Resolved]

NARRATIVE: CASE EVENT DATE: 20200111
